FAERS Safety Report 7990613-2 (Version None)
Quarter: 2011Q4

REPORT INFORMATION
  Report Type: 
  Country: None (occurrence: None)
  Receive Date: 20111219
  Receipt Date: 20111027
  Transmission Date: 20120403
  Serious: No
  Sender: FDA-Public Use
  Company Number: US-ASTRAZENECA-2011SE44206

PATIENT
  Age: 61 Year
  Sex: Female

DRUGS (4)
  1. CRESTOR [Suspect]
     Route: 048
  2. CRESTOR [Suspect]
     Route: 048
     Dates: start: 20100310
  3. CRESTOR [Suspect]
     Dosage: 7 MG FREQUENCY UNKNOWN
     Route: 048
     Dates: start: 20110520
  4. CRESTOR [Suspect]
     Dosage: CUTTING 5 MG PILL
     Route: 048

REACTIONS (2)
  - DRUG PRESCRIBING ERROR [None]
  - BLOOD CHOLESTEROL INCREASED [None]
